FAERS Safety Report 6550532-5 (Version None)
Quarter: 2010Q1

REPORT INFORMATION
  Report Type: 
  Country: None (occurrence: None)
  Receive Date: 20100125
  Receipt Date: 20100115
  Transmission Date: 20100710
  Serious: Yes (Other)
  Sender: FDA-Public Use
  Company Number: B0627490A

PATIENT
  Sex: Male

DRUGS (4)
  1. RANIPLEX [Suspect]
  2. SPASFON [Concomitant]
     Indication: DRUG USE FOR UNKNOWN INDICATION
  3. DOLIPRANE [Concomitant]
     Indication: DRUG USE FOR UNKNOWN INDICATION
  4. VITAMIN PREPARATION [Concomitant]
     Indication: DRUG USE FOR UNKNOWN INDICATION

REACTIONS (4)
  - CONGENITAL GASTRIC ANOMALY [None]
  - DRUG EXPOSURE DURING PREGNANCY [None]
  - PNEUMONIA ASPIRATION [None]
  - VOMITING [None]
